FAERS Safety Report 8201830-0 (Version None)
Quarter: 2012Q1

REPORT INFORMATION
  Report Type: 
  Country: None (occurrence: None)
  Receive Date: 20120307
  Receipt Date: 20120229
  Transmission Date: 20120608
  Serious: Yes (Hospitalization)
  Sender: FDA-Public Use
  Company Number: CPI-014-02

PATIENT
  Sex: Female
  Weight: 56.2 kg

DRUGS (3)
  1. IBUPROFEN [Suspect]
     Indication: PAIN
     Dosage: 10MG/KG, SINGLE DOSE, IV
     Route: 042
     Dates: start: 20120223
  2. HYDROCODONE BITARTRATE AND ACETAMINOPHEN [Concomitant]
  3. ACETAMINOPHEN [Concomitant]

REACTIONS (1)
  - PHARYNGEAL HAEMATOMA [None]
